FAERS Safety Report 15612426 (Version 1)
Quarter: 2018Q4

REPORT INFORMATION
  Report Type: Spontaneous
  Country: IR (occurrence: IR)
  Receive Date: 20181113
  Receipt Date: 20181113
  Transmission Date: 20190205
  Serious: Yes (Other)
  Sender: FDA-Public Use
  Company Number: IR-RECORDATI RARE DISEASES INC.-IR-R13005-18-00276

PATIENT
  Age: 35 Year
  Sex: Female

DRUGS (6)
  1. CYCLOPHOSPHAMIDE. [Concomitant]
     Active Substance: CYCLOPHOSPHAMIDE
     Indication: GESTATIONAL TROPHOBLASTIC TUMOUR
     Route: 065
  2. VINCRISTINE [Concomitant]
     Active Substance: VINCRISTINE
     Indication: GESTATIONAL TROPHOBLASTIC TUMOUR
     Route: 065
  3. DACTINOMYCIN [Suspect]
     Active Substance: DACTINOMYCIN
     Indication: GESTATIONAL TROPHOBLASTIC TUMOUR
     Route: 065
  4. ETOPOSIDE. [Concomitant]
     Active Substance: ETOPOSIDE
     Indication: GESTATIONAL TROPHOBLASTIC TUMOUR
     Route: 065
  5. METHOTREXATE. [Concomitant]
     Active Substance: METHOTREXATE
     Indication: GESTATIONAL TROPHOBLASTIC TUMOUR
     Route: 065
  6. CISPLATIN. [Concomitant]
     Active Substance: CISPLATIN
     Indication: GESTATIONAL TROPHOBLASTIC TUMOUR
     Route: 065

REACTIONS (2)
  - Therapy partial responder [Unknown]
  - Malignant hydatidiform mole [Unknown]
